FAERS Safety Report 7576806-7 (Version None)
Quarter: 2011Q2

REPORT INFORMATION
  Report Type: 
  Country: None (occurrence: None)
  Receive Date: 20110624
  Receipt Date: 20110624
  Transmission Date: 20111010
  Serious: Yes (Other)
  Sender: FDA-Public Use
  Company Number: None

PATIENT
  Age: 71 Year
  Sex: Female
  Weight: 83.9154 kg

DRUGS (1)
  1. JANUVIA [Suspect]
     Indication: TYPE 2 DIABETES MELLITUS
     Dosage: ONE TABLET DAILY ONCE DAILY PO
     Route: 048
     Dates: start: 20110525, end: 20110620

REACTIONS (2)
  - GENERALISED OEDEMA [None]
  - ABDOMINAL PAIN UPPER [None]
